FAERS Safety Report 5693419-2 (Version None)
Quarter: 2008Q2

REPORT INFORMATION
  Report Type: 
  Country: None (occurrence: None)
  Receive Date: 20080403
  Receipt Date: 20080325
  Transmission Date: 20081010
  Serious: Yes (Other)
  Sender: FDA-Public Use
  Company Number: US-BAYER-200811181BCC

PATIENT
  Sex: Female

DRUGS (1)
  1. MIDOL MENSTRUAL COMPLETE CAPLET [Suspect]
     Indication: MENSTRUAL DISORDER
     Route: 048
     Dates: start: 20080325

REACTIONS (3)
  - HEART RATE INCREASED [None]
  - HYPERTENSION [None]
  - LOSS OF CONSCIOUSNESS [None]
